FAERS Safety Report 6747917-0 (Version None)
Quarter: 2010Q2

REPORT INFORMATION
  Report Type: 
  Country: None (occurrence: None)
  Receive Date: 20100528
  Receipt Date: 20100517
  Transmission Date: 20101027
  Serious: Yes (Other)
  Sender: FDA-Public Use
  Company Number: ES-ELI_LILLY_AND_COMPANY-ES201005004808

PATIENT
  Sex: Female
  Weight: 89 kg

DRUGS (4)
  1. FORTEO [Suspect]
     Indication: OSTEOPOROSIS
     Dosage: 20 UG, DAILY (1/D)
     Route: 058
     Dates: start: 20090203
  2. ANTIHYPERTENSIVES [Concomitant]
     Indication: HYPERTENSION
     Dosage: UNK, DAILY (1/D)
     Route: 048
  3. CHOLESTEROL- AND TRIGLYCERIDE REDUCERS [Concomitant]
     Indication: BLOOD CHOLESTEROL INCREASED
     Dosage: UNK, DAILY (1/D)
     Route: 048
  4. CALCIO [Concomitant]
     Dosage: UNK, DAILY (1/D)
     Route: 048

REACTIONS (2)
  - LUNG NEOPLASM MALIGNANT [None]
  - THYROID NEOPLASM [None]
